FAERS Safety Report 25609748 (Version 1)
Quarter: 2025Q3

REPORT INFORMATION
  Report Type: Spontaneous
  Country: CH (occurrence: CH)
  Receive Date: 20250728
  Receipt Date: 20250728
  Transmission Date: 20251021
  Serious: Yes (Other)
  Sender: EXELA PHARMA SCIENCES
  Company Number: CH-EXELAPHARMA-2025EXLA00127

PATIENT
  Age: 32 Year
  Sex: Female

DRUGS (13)
  1. TRANEXAMIC ACID [Suspect]
     Active Substance: TRANEXAMIC ACID
     Indication: Procedural haemorrhage
     Route: 042
  2. PROPOFOL [Concomitant]
     Active Substance: PROPOFOL
     Indication: Anaesthesia
  3. KETAMINE [Concomitant]
     Active Substance: KETAMINE
     Indication: Anaesthesia
  4. SUFENTANIL [Concomitant]
     Active Substance: SUFENTANIL
     Indication: Anaesthesia
  5. SUFENTANIL [Concomitant]
     Active Substance: SUFENTANIL
  6. SUCCINYLCHOLINE [Concomitant]
     Active Substance: SUCCINYLCHOLINE
     Indication: Anaesthesia
  7. SEVOFLURANE [Concomitant]
     Active Substance: SEVOFLURANE
     Indication: Anaesthesia
  8. ROCURONIUM [Concomitant]
     Active Substance: ROCURONIUM BROMIDE
     Route: 040
  9. FRESH FROZEN PLASMA [Concomitant]
     Active Substance: HUMAN PLASMA
     Indication: Procedural haemorrhage
     Route: 042
  10. SUGAMMADEX [Concomitant]
     Active Substance: SUGAMMADEX
  11. PHENYLEPHRINE [Concomitant]
     Active Substance: PHENYLEPHRINE
     Indication: Blood antidiuretic hormone
  12. EPHEDRINE [Concomitant]
     Active Substance: EPHEDRINE
     Indication: Blood antidiuretic hormone
  13. ENOXAPARIN [Concomitant]
     Active Substance: ENOXAPARIN

REACTIONS (3)
  - Blindness transient [Recovered/Resolved]
  - Dyschromatopsia [Recovered/Resolved]
  - Off label use [Unknown]
